FAERS Safety Report 18123735 (Version 1)
Quarter: 2020Q3

REPORT INFORMATION
  Report Type: Report from Study
  Country: None (occurrence: US)
  Receive Date: 20200807
  Receipt Date: 20200807
  Transmission Date: 20201103
  Serious: Yes (Hospitalization, Other)
  Sender: FDA-Public Use
  Company Number: US-ABBVIE-17K-163-3063039-00

PATIENT
  Age: 81 Year
  Sex: Female
  Weight: 75 kg

DRUGS (12)
  1. LEVOTHYROXINE. [Concomitant]
     Active Substance: LEVOTHYROXINE
     Indication: PRODUCT USED FOR UNKNOWN INDICATION
  2. MULTIVITAMIN                       /00097801/ [Concomitant]
     Active Substance: VITAMINS
     Indication: PRODUCT USED FOR UNKNOWN INDICATION
     Dosage: UNK, QD
  3. IMBRUVICA [Suspect]
     Active Substance: IBRUTINIB
     Dosage: 140 MG, BID
     Route: 048
     Dates: start: 20170111, end: 2017
  4. IMBRUVICA [Suspect]
     Active Substance: IBRUTINIB
     Dosage: 420 MG, BID
     Route: 048
     Dates: start: 2017
  5. IMBRUVICA [Suspect]
     Active Substance: IBRUTINIB
     Dosage: 420 MG, QD
     Route: 048
     Dates: start: 20170206
  6. VITAMIN D NOS [Concomitant]
     Active Substance: VITAMIN D NOS
     Indication: PRODUCT USED FOR UNKNOWN INDICATION
  7. BENADRYL [Concomitant]
     Active Substance: DIPHENHYDRAMINE HYDROCHLORIDE
     Indication: PRURITUS
     Dosage: 25 MG, QD
     Route: 048
  8. IMBRUVICA [Suspect]
     Active Substance: IBRUTINIB
     Dosage: 420 MG, QD
     Route: 048
     Dates: start: 20170102
  9. ZOLOFT [Concomitant]
     Active Substance: SERTRALINE HYDROCHLORIDE
     Indication: PRODUCT USED FOR UNKNOWN INDICATION
     Dosage: UNK
     Route: 065
  10. IMBRUVICA [Suspect]
     Active Substance: IBRUTINIB
     Indication: CHRONIC LYMPHOCYTIC LEUKAEMIA
     Route: 065
     Dates: start: 20161229
  11. IMBRUVICA [Suspect]
     Active Substance: IBRUTINIB
     Dosage: 280 MG, QD
     Route: 048
     Dates: start: 20180403
  12. IMBRUVICA [Suspect]
     Active Substance: IBRUTINIB
     Route: 048

REACTIONS (37)
  - Blood iron decreased [Not Recovered/Not Resolved]
  - Fall [Unknown]
  - Weight increased [Not Recovered/Not Resolved]
  - Head injury [Unknown]
  - Blood count abnormal [Recovering/Resolving]
  - Impaired healing [Unknown]
  - Contusion [Unknown]
  - Nephrolithiasis [Unknown]
  - Muscle strain [Recovered/Resolved]
  - Photosensitivity reaction [Unknown]
  - Oropharyngeal pain [Not Recovered/Not Resolved]
  - Viral infection [Unknown]
  - Hip fracture [Recovering/Resolving]
  - Wrist fracture [Recovering/Resolving]
  - Adverse event [Unknown]
  - Asthenia [Unknown]
  - Haematuria [Recovered/Resolved]
  - Urinary tract infection bacterial [Unknown]
  - Rhinorrhoea [Not Recovered/Not Resolved]
  - Thyroid hormones decreased [Recovering/Resolving]
  - Swelling [Unknown]
  - Dizziness [Unknown]
  - Illness [Unknown]
  - Rash macular [Recovered/Resolved]
  - Renal impairment [Unknown]
  - Inappropriate schedule of product administration [Not Recovered/Not Resolved]
  - Drug intolerance [Unknown]
  - Influenza [Unknown]
  - Dyspepsia [Unknown]
  - White blood cell count decreased [Unknown]
  - Chills [Unknown]
  - Headache [Unknown]
  - Animal scratch [Unknown]
  - Crying [Recovering/Resolving]
  - Pruritus [Not Recovered/Not Resolved]
  - Fatigue [Not Recovered/Not Resolved]
  - Anaemia [Unknown]

NARRATIVE: CASE EVENT DATE: 2017
